FAERS Safety Report 10900222 (Version 1)
Quarter: 2015Q1

REPORT INFORMATION
  Report Type: Spontaneous
  Country: CN (occurrence: CN)
  Receive Date: 20150310
  Receipt Date: 20150310
  Transmission Date: 20150721
  Serious: Yes (Other)
  Sender: FDA-Public Use
  Company Number: CN-ACCORD-029059

PATIENT
  Age: 37 Year
  Sex: Male

DRUGS (2)
  1. PIRARUBICIN [Suspect]
     Active Substance: PIRARUBICIN
     Indication: HEPATOCELLULAR CARCINOMA
     Dosage: CHEMOEMBOLIC SOLUTION EMULSIFIED WITH ETHIODIZED OIL.?INJECTED INTO INTERCOSTAL ARTERY.?3RD SESSIO
  2. MITOMYCIN. [Suspect]
     Active Substance: MITOMYCIN
     Indication: HEPATOCELLULAR CARCINOMA
     Dosage: CHEMOEMBOLIC SOLUTION EMULSIFIED WITH ETHIODIZED OIL.?INJECTED INTO INTERCOSTAL ARTERY.?3RD SESSIO

REACTIONS (4)
  - Pain [Unknown]
  - Blister [Unknown]
  - Skin necrosis [Recovered/Resolved with Sequelae]
  - Erythema [Unknown]
